FAERS Safety Report 7600171-X (Version None)
Quarter: 2011Q2

REPORT INFORMATION
  Report Type: 
  Country: None (occurrence: None)
  Receive Date: 20110629
  Receipt Date: 20110617
  Transmission Date: 20111010
  Serious: Yes (Death, Other)
  Sender: FDA-Public Use
  Company Number: ALA_02205_2011

PATIENT
  Sex: Male
  Weight: 104.3273 kg

DRUGS (8)
  1. UNSPECIFIED SLEEP MEDICATION [Concomitant]
  2. PREDNISONE [Concomitant]
  3. INSULIN [Concomitant]
  4. RANITIDINE [Concomitant]
  5. BENADRYL [Concomitant]
  6. REGLAN [Suspect]
     Indication: GASTROINTESTINAL DISORDER
     Dosage: (10 MG ORAL)
     Route: 048
     Dates: start: 19940524, end: 20100609
  7. TEMAZEPAM [Concomitant]
  8. ANITRIPTYLINE [Concomitant]

REACTIONS (11)
  - ECONOMIC PROBLEM [None]
  - EXTRAPYRAMIDAL DISORDER [None]
  - CHOREA [None]
  - VENTRICULAR FIBRILLATION [None]
  - MYOCARDIAL INFARCTION [None]
  - PNEUMONIA STAPHYLOCOCCAL [None]
  - RENAL FAILURE CHRONIC [None]
  - TARDIVE DYSKINESIA [None]
  - EMOTIONAL DISORDER [None]
  - RESTLESS LEGS SYNDROME [None]
  - DYSKINESIA [None]
